FAERS Safety Report 5757723-1 (Version None)
Quarter: 2008Q2

REPORT INFORMATION
  Report Type: 
  Country: None (occurrence: None)
  Receive Date: 20080529
  Receipt Date: 20080514
  Transmission Date: 20081010
  Serious: Yes (Hospitalization)
  Sender: FDA-Public Use
  Company Number: 310010M08FRA

PATIENT
  Age: 36 Year
  Sex: Female

DRUGS (6)
  1. GONAL-F [Suspect]
     Indication: IN VITRO FERTILISATION
     Dosage: SEE IMAGE
  2. GONAL-F [Suspect]
     Indication: IN VITRO FERTILISATION
     Dosage: SEE IMAGE
  3. GONAL-F [Suspect]
     Indication: IN VITRO FERTILISATION
     Dosage: SEE IMAGE
  4. GONAL-F [Suspect]
     Indication: IN VITRO FERTILISATION
     Dosage: SEE IMAGE
  5. OVITRELLE (CHORIOGONADOTROPIN ALFA) [Suspect]
     Indication: IN VITRO FERTILISATION
     Dosage: ONCE
     Dates: start: 20080430, end: 20080430
  6. LEUPRORELIN [Concomitant]

REACTIONS (2)
  - CEREBRAL ARTERY THROMBOSIS [None]
  - CEREBROVASCULAR ACCIDENT [None]
